FAERS Safety Report 4489416-5 (Version None)
Quarter: 2004Q4

REPORT INFORMATION
  Report Type: 
  Country: None (occurrence: None)
  Receive Date: 20041101
  Receipt Date: 20040916
  Transmission Date: 20050328
  Serious: Yes (Other)
  Sender: FDA-Public Use
  Company Number: AR-ABBOTT-04P-007-0273740-00

PATIENT
  Sex: Male
  Weight: 85 kg

DRUGS (4)
  1. VALCOTE [Suspect]
     Indication: DRUG DEPENDENCE
     Route: 048
     Dates: start: 20040820, end: 20040910
  2. VALCOTE [Suspect]
     Indication: ALCOHOLISM
  3. LAMOTRIGINE [Concomitant]
     Indication: DRUG DEPENDENCE
     Route: 048
     Dates: start: 20040909
  4. LAMOTRIGINE [Concomitant]
     Indication: ALCOHOLISM

REACTIONS (2)
  - LARYNGEAL OEDEMA [None]
  - TOXIC SKIN ERUPTION [None]
